FAERS Safety Report 25732634 (Version 3)
Quarter: 2025Q3

REPORT INFORMATION
  Report Type: Spontaneous
  Country: JP (occurrence: JP)
  Receive Date: 20250827
  Receipt Date: 20250915
  Transmission Date: 20251020
  Serious: Yes (Hospitalization)
  Sender: JOHNSON AND JOHNSON
  Company Number: JP-JNJFOC-20250833097

PATIENT
  Age: 8 Decade
  Sex: Female

DRUGS (2)
  1. RYBREVANT [Suspect]
     Active Substance: AMIVANTAMAB-VMJW
     Indication: EGFR gene mutation
     Route: 041
     Dates: start: 20250717, end: 20250731
  2. LAZCLUZE [Suspect]
     Active Substance: LAZERTINIB
     Indication: EGFR gene mutation
     Route: 048
     Dates: start: 20250717, end: 20250731

REACTIONS (1)
  - Pulmonary toxicity [Recovered/Resolved]

NARRATIVE: CASE EVENT DATE: 20250701
